FAERS Safety Report 5377674-4 (Version None)
Quarter: 2007Q3

REPORT INFORMATION
  Report Type: 
  Country: None (occurrence: None)
  Receive Date: 20070703
  Receipt Date: 20070622
  Transmission Date: 20080115
  Serious: Yes (Other)
  Sender: FDA-Public Use
  Company Number: PT-PFIZER INC-2007038063

PATIENT
  Sex: Female
  Weight: 135 kg

DRUGS (14)
  1. LYRICA [Suspect]
     Indication: NEURALGIA
     Route: 048
     Dates: start: 20060918, end: 20061001
  2. LYRICA [Interacting]
  3. TRAMADOL HYDROCHLORIDE AND ACETAMINOPHEN [Interacting]
  4. RISIDON [Concomitant]
     Route: 048
  5. SEDOXIL [Concomitant]
     Route: 048
  6. FOLICIL [Concomitant]
     Route: 048
  7. ZOLOFT [Concomitant]
     Route: 048
  8. VALIUM [Concomitant]
     Route: 048
  9. ACETAMINOPHEN [Concomitant]
     Route: 048
  10. METAMIZOLE [Concomitant]
     Route: 048
  11. TRAMADOL HCL [Concomitant]
     Route: 048
  12. MAGNESIUM SULFATE [Concomitant]
     Route: 048
  13. OMEPRAZOLE [Concomitant]
     Route: 048
  14. LEVOTHYROXINE SODIUM [Concomitant]
     Route: 048

REACTIONS (5)
  - ABNORMAL DREAMS [None]
  - CONFUSIONAL STATE [None]
  - DRUG INTERACTION [None]
  - HALLUCINATION [None]
  - INCOHERENT [None]
